FAERS Safety Report 8577354 (Version 2)
Quarter: 2013Q2

REPORT INFORMATION
  Report Type: Report from Study
  Country: MX (occurrence: MX)
  Receive Date: 20120524
  Receipt Date: 20130425
  Transmission Date: 20140414
  Serious: Yes (Death, Hospitalization)
  Sender: FDA-Public Use
  Company Number: PHHY2012MX043296

PATIENT
  Age: 83 Year
  Sex: Male

DRUGS (2)
  1. EXFORGE [Suspect]
     Indication: HYPERTENSION
     Dosage: 1 DF, QD (160 MG VALS AND 10 MG AMLO)
     Dates: start: 2009
  2. PARACETAMOL [Concomitant]
     Indication: ARTHRITIS

REACTIONS (1)
  - Myocardial infarction [Fatal]
